FAERS Safety Report 11446131 (Version 1)
Quarter: 2015Q3

REPORT INFORMATION
  Report Type: Spontaneous
  Country: US (occurrence: US)
  Receive Date: 20150831
  Receipt Date: 20150831
  Transmission Date: 20151125
  Serious: No
  Sender: FDA-Public Use
  Company Number: US-ELI_LILLY_AND_COMPANY-US200809006732

PATIENT
  Age: 38 Year
  Sex: Male
  Weight: 58.96 kg

DRUGS (1)
  1. CYMBALTA [Suspect]
     Active Substance: DULOXETINE HYDROCHLORIDE
     Indication: DEPRESSION
     Dosage: 30 MG, UNK
     Route: 048
     Dates: start: 20080804, end: 20080807

REACTIONS (2)
  - Suicidal ideation [Unknown]
  - Depression [Unknown]

NARRATIVE: CASE EVENT DATE: 20080807
